FAERS Safety Report 4543921-1 (Version None)
Quarter: 2004Q4

REPORT INFORMATION
  Report Type: 
  Country: None (occurrence: None)
  Receive Date: 20041229
  Receipt Date: 20041229
  Transmission Date: 20050328
  Serious: No
  Sender: FDA-Public Use
  Company Number: None

PATIENT
  Age: 63 Year
  Sex: Male
  Weight: 65.5 kg

DRUGS (7)
  1. LINEZOLID [Suspect]
     Indication: SEPSIS
     Dosage: 600 MG IV Q 12 H
     Route: 042
     Dates: start: 20041109, end: 20041110
  2. IMIPENEM [Concomitant]
  3. FLUCONAZOLE [Concomitant]
  4. ACYCLOVIR [Concomitant]
  5. DOPAMINE HCL [Concomitant]
  6. MORPHINE [Concomitant]
  7. METOCLOPRAMIDE [Concomitant]

REACTIONS (5)
  - BLOOD PRESSURE INCREASED [None]
  - BODY TEMPERATURE INCREASED [None]
  - CHILLS [None]
  - HEART RATE INCREASED [None]
  - RESPIRATORY RATE INCREASED [None]
